FAERS Safety Report 22177208 (Version 1)
Quarter: 2023Q2

REPORT INFORMATION
  Report Type: Spontaneous
  Country: US (occurrence: None)
  Receive Date: 20230405
  Receipt Date: 20230405
  Transmission Date: 20230721
  Serious: Yes (Other)
  Sender: FDA-Public Use
  Company Number: None

PATIENT
  Age: 36 Year
  Sex: Female
  Weight: 86.6 kg

DRUGS (1)
  1. INFLECTRA [Suspect]
     Active Substance: INFLIXIMAB-DYYB
     Indication: Rheumatoid arthritis
     Dates: start: 20230308

REACTIONS (12)
  - Chest discomfort [None]
  - Dyspnoea [None]
  - Hot flush [None]
  - Middle insomnia [None]
  - Nausea [None]
  - Vomiting [None]
  - Infusion related reaction [None]
  - Chills [None]
  - Tachycardia [None]
  - Chest discomfort [None]
  - Chest pain [None]
  - Similar reaction on previous exposure to drug [None]

NARRATIVE: CASE EVENT DATE: 20230403
